FAERS Safety Report 12911315 (Version 9)
Quarter: 2018Q1

REPORT INFORMATION
  Report Type: Spontaneous
  Country: US (occurrence: US)
  Receive Date: 20161104
  Receipt Date: 20180328
  Transmission Date: 20180508
  Serious: Yes (Hospitalization, Other)
  Sender: FDA-Public Use
  Company Number: US-PFIZER INC-2016474007

PATIENT
  Age: 46 Year
  Sex: Female

DRUGS (1)
  1. LYRICA [Suspect]
     Active Substance: PREGABALIN
     Indication: DIABETIC NEUROPATHY
     Dosage: 50 MG, 3X/DAY
     Dates: start: 20061012, end: 20061013

REACTIONS (14)
  - Hypersensitivity [Recovered/Resolved]
  - Nausea [Unknown]
  - Hyperhidrosis [Recovered/Resolved]
  - Cerebrovascular accident [Recovered/Resolved]
  - Ocular hyperaemia [Recovered/Resolved]
  - Malaise [Recovered/Resolved]
  - Fall [Recovered/Resolved]
  - Swelling face [Unknown]
  - Urticaria [Recovered/Resolved]
  - Facial paralysis [Recovered/Resolved]
  - Feeling hot [Not Recovered/Not Resolved]
  - Diarrhoea [Recovered/Resolved]
  - Angioedema [Unknown]
  - Erythema [Not Recovered/Not Resolved]

NARRATIVE: CASE EVENT DATE: 200610
